FAERS Safety Report 15395833 (Version 1)
Quarter: 2018Q3

REPORT INFORMATION
  Report Type: Spontaneous
  Country: JP (occurrence: JP)
  Receive Date: 20180918
  Receipt Date: 20180918
  Transmission Date: 20181010
  Serious: Yes (Death, Life-Threatening, Hospitalization, Other)
  Sender: FDA-Public Use
  Company Number: JP-OTSUKA-2018_031180

PATIENT
  Age: 62 Year
  Sex: Female

DRUGS (3)
  1. SAMSCA [Suspect]
     Active Substance: TOLVAPTAN
     Indication: CARDIAC FAILURE CHRONIC
     Dosage: 7.5 MG, QD
     Route: 048
  2. NICORANDIL [Concomitant]
     Active Substance: NICORANDIL
     Indication: CORONARY ARTERY STENOSIS
     Dosage: 5 MG, QD
     Route: 048
     Dates: start: 20180413
  3. AMIODARONE [Concomitant]
     Active Substance: AMIODARONE
     Indication: VENTRICULAR TACHYCARDIA
     Dosage: 100 MG, QD
     Route: 048
     Dates: start: 20180413

REACTIONS (5)
  - Renal impairment [Unknown]
  - Pulmonary arterial hypertension [Unknown]
  - Ventricular fibrillation [Unknown]
  - Multiple organ dysfunction syndrome [Fatal]
  - Ventricular extrasystoles [Unknown]

NARRATIVE: CASE EVENT DATE: 20180413
